FAERS Safety Report 4536948-7 (Version None)
Quarter: 2004Q4

REPORT INFORMATION
  Report Type: 
  Country: None (occurrence: None)
  Receive Date: 20041220
  Receipt Date: 20041208
  Transmission Date: 20050328
  Serious: Yes (Hospitalization)
  Sender: FDA-Public Use
  Company Number: STA-AE-04-MTX-386

PATIENT
  Age: 38 Year
  Sex: Female

DRUGS (4)
  1. METHOTREXATE [Suspect]
     Indication: POLYARTHRITIS
     Dosage: 10 MG, ORAL
     Route: 048
     Dates: start: 20010315, end: 20010615
  2. ENBREL [Suspect]
     Indication: POLYARTHRITIS
     Dosage: 25 MG 2X PER 1 WK, SC
     Route: 058
     Dates: start: 20030615, end: 20040115
  3. ARAVA [Suspect]
     Indication: POLYARTHRITIS
     Dosage: 20 MG 1X PER 1 DAY, ORAL
     Route: 048
     Dates: start: 20010715, end: 20030515
  4. REMICADE [Suspect]
     Indication: POLYARTHRITIS
     Dosage: 0.3 G 10X PER 1 CYC, INTRAVENOUS
     Route: 042
     Dates: start: 20011015, end: 20030515

REACTIONS (4)
  - BETA 2 MICROGLOBULIN INCREASED [None]
  - BLOOD LACTATE DEHYDROGENASE INCREASED [None]
  - LYMPHADENOPATHY [None]
  - T-CELL LYMPHOMA STAGE IV [None]
